FAERS Safety Report 20858814 (Version 1)
Quarter: 2022Q2

REPORT INFORMATION
  Report Type: Spontaneous
  Country: TW (occurrence: TW)
  Receive Date: 20220522
  Receipt Date: 20220522
  Transmission Date: 20220721
  Serious: Yes (Hospitalization)
  Sender: FDA-Public Use
  Company Number: TW-LUPIN PHARMACEUTICALS INC.-2022-07273

PATIENT
  Age: 39 Year
  Sex: Female
  Weight: 50 kg

DRUGS (17)
  1. SILDENAFIL [Suspect]
     Active Substance: SILDENAFIL
     Indication: Pulmonary arterial hypertension
     Dosage: 20 MG, TID
     Route: 048
  2. MACITENTAN [Suspect]
     Active Substance: MACITENTAN
     Indication: Pulmonary arterial hypertension
     Dosage: 10 MG, QD
     Route: 048
  3. SELEXIPAG [Suspect]
     Active Substance: SELEXIPAG
     Indication: Pulmonary arterial hypertension
     Dosage: 1600 MICROGRAM, BID (GRADUALLY DECREASED TO 200 MCG)
     Route: 048
  4. SELEXIPAG [Suspect]
     Active Substance: SELEXIPAG
     Dosage: 1400 MICROGRAM, BID
     Route: 048
  5. SELEXIPAG [Suspect]
     Active Substance: SELEXIPAG
     Dosage: 1200 MICROGRAM, BID
     Route: 048
  6. SELEXIPAG [Suspect]
     Active Substance: SELEXIPAG
     Dosage: 800 MICROGRAM, BID
     Route: 048
  7. SELEXIPAG [Suspect]
     Active Substance: SELEXIPAG
     Dosage: 600 MICROGRAM, BID
     Route: 048
  8. SELEXIPAG [Suspect]
     Active Substance: SELEXIPAG
     Dosage: 400 MICROGRAM, BID
     Route: 048
  9. SELEXIPAG [Suspect]
     Active Substance: SELEXIPAG
     Dosage: 200 MICROGRAM, BID
     Route: 048
  10. TREPROSTINIL [Concomitant]
     Active Substance: TREPROSTINIL
     Indication: Pulmonary arterial hypertension
     Dosage: UNK (5 NG/KG/MIN)
     Route: 058
  11. TREPROSTINIL [Concomitant]
     Active Substance: TREPROSTINIL
     Dosage: UNK (10 NG/KG/MIN)
     Route: 058
  12. TREPROSTINIL [Concomitant]
     Active Substance: TREPROSTINIL
     Dosage: UNK (15 NG/KG/MIN)
     Route: 058
  13. TREPROSTINIL [Concomitant]
     Active Substance: TREPROSTINIL
     Dosage: UNK (20 NG/KG/MIN)
     Route: 058
  14. TREPROSTINIL [Concomitant]
     Active Substance: TREPROSTINIL
     Dosage: UNK (25 NG/KG/MIN)
     Route: 058
  15. TREPROSTINIL [Concomitant]
     Active Substance: TREPROSTINIL
     Dosage: UNK (30 NG/KG/MIN)
     Route: 058
  16. TREPROSTINIL [Concomitant]
     Active Substance: TREPROSTINIL
     Dosage: UNK (35 NG/KG/MIN)
     Route: 058
  17. TREPROSTINIL [Concomitant]
     Active Substance: TREPROSTINIL
     Dosage: UNK (40 NG/KG/MIN)
     Route: 058

REACTIONS (3)
  - Drug ineffective for unapproved indication [Unknown]
  - Disease progression [Unknown]
  - Off label use [Unknown]
